FAERS Safety Report 12986659 (Version 3)
Quarter: 2017Q1

REPORT INFORMATION
  Report Type: Report from Study
  Country: US (occurrence: US)
  Receive Date: 20161130
  Receipt Date: 20170106
  Transmission Date: 20170428
  Serious: Yes (Other)
  Sender: FDA-Public Use
  Company Number: US-TEVA-716590USA

PATIENT
  Age: 60 Year
  Sex: Female
  Weight: 85.35 kg

DRUGS (2)
  1. PREDNISONE. [Concomitant]
     Active Substance: PREDNISONE
     Indication: POLYMYOSITIS
  2. CINQAIR [Suspect]
     Active Substance: RESLIZUMAB
     Indication: ASTHMA
     Route: 042
     Dates: start: 20161122

REACTIONS (1)
  - Blood pressure increased [Recovered/Resolved]

NARRATIVE: CASE EVENT DATE: 20161122
